FAERS Safety Report 7234638-3 (Version None)
Quarter: 2011Q1

REPORT INFORMATION
  Report Type: 
  Country: None (occurrence: None)
  Receive Date: 20110120
  Receipt Date: 20110110
  Transmission Date: 20110831
  Serious: No
  Sender: FDA-Public Use
  Company Number: US-BIOGENIDEC-2010BI038513

PATIENT
  Sex: Female

DRUGS (1)
  1. TYSABRI [Suspect]
     Indication: MULTIPLE SCLEROSIS
     Route: 042
     Dates: start: 20080723

REACTIONS (8)
  - FEELING ABNORMAL [None]
  - GAIT DISTURBANCE [None]
  - FATIGUE [None]
  - MALAISE [None]
  - HEADACHE [None]
  - DEPRESSION [None]
  - DEPRESSED MOOD [None]
  - BALANCE DISORDER [None]
